FAERS Safety Report 15363290 (Version 2)
Quarter: 2018Q4

REPORT INFORMATION
  Report Type: Spontaneous
  Country: JP (occurrence: JP)
  Receive Date: 20180907
  Receipt Date: 20181115
  Transmission Date: 20190204
  Serious: Yes (Other)
  Sender: FDA-Public Use
  Company Number: JP-SUCAMPO PHARMACEUTICALS INC.-SPI201800891

PATIENT
  Age: 43 Year
  Sex: Female

DRUGS (9)
  1. MAGNESIUM OXIDE. [Concomitant]
     Active Substance: MAGNESIUM OXIDE
     Indication: CONSTIPATION
     Dosage: UNK
     Route: 048
     Dates: start: 201709
  2. AMITIZA [Suspect]
     Active Substance: LUBIPROSTONE
     Indication: CONSTIPATION
     Dosage: UNK
     Route: 048
     Dates: start: 20160402
  3. LINZESS [Concomitant]
     Active Substance: LINACLOTIDE
     Indication: CONSTIPATION
     Dosage: UNK
     Route: 048
     Dates: start: 20180725
  4. DAIOU [Concomitant]
     Route: 048
  5. CETILO [Concomitant]
     Active Substance: SENNA LEAF
     Indication: CONSTIPATION
     Dosage: UNK
     Route: 048
     Dates: start: 201605
  6. DAIOBOTAMPITO [Concomitant]
     Active Substance: HERBALS
     Route: 048
  7. ZETIA [Concomitant]
     Active Substance: EZETIMIBE
     Route: 048
  8. SENNA                              /00571902/ [Concomitant]
     Route: 048
  9. MAKYOYOKUKANTO [Suspect]
     Active Substance: HERBALS
     Indication: CONSTIPATION
     Dosage: UNK
     Route: 048
     Dates: start: 201510, end: 20180831

REACTIONS (2)
  - Rhabdomyolysis [Recovered/Resolved]
  - Hypokalaemia [Recovered/Resolved]

NARRATIVE: CASE EVENT DATE: 20180831
